FAERS Safety Report 9373019 (Version 1)
Quarter: 2013Q2

REPORT INFORMATION
  Report Type: Spontaneous
  Country: PL (occurrence: None)
  Receive Date: 20130624
  Receipt Date: 20130624
  Transmission Date: 20140414
  Serious: Yes (Hospitalization)
  Sender: FDA-Public Use
  Company Number: B0899831A

PATIENT
  Age: 37 Year
  Sex: Female

DRUGS (1)
  1. CEFTIN [Suspect]
     Indication: SINUSITIS
     Dosage: 500 MG/ TWICE PER DAY/ PO
     Route: 048

REACTIONS (1)
  - Linear IgA disease [None]
